FAERS Safety Report 15578553 (Version 1)
Quarter: 2018Q4

REPORT INFORMATION
  Report Type: Spontaneous
  Country: US (occurrence: US)
  Receive Date: 20181102
  Receipt Date: 20181102
  Transmission Date: 20190205
  Serious: Yes (Hospitalization, Other)
  Sender: FDA-Public Use
  Company Number: US-ZYDUS-029450

PATIENT
  Age: 26 Year
  Sex: Female

DRUGS (1)
  1. HYDROXYCHLOROQUINE [Suspect]
     Active Substance: HYDROXYCHLOROQUINE
     Indication: PRODUCT USED FOR UNKNOWN INDICATION
     Dosage: TWENTY 200MG (TOTAL 4G) TABLETS OF HYDROXYCHLOROQUINE ALONG WITH ALCOHOL
     Route: 048

REACTIONS (15)
  - Suicide attempt [Unknown]
  - Electrocardiogram QRS complex prolonged [Recovered/Resolved]
  - Intentional overdose [Unknown]
  - Toxicity to various agents [Unknown]
  - Hypokalaemia [Unknown]
  - Hypoxia [Unknown]
  - Systemic lupus erythematosus [Unknown]
  - Hypotension [Recovered/Resolved]
  - Mental status changes [Unknown]
  - Somnolence [Unknown]
  - Ventricular extrasystoles [Recovered/Resolved]
  - Ejection fraction decreased [Recovered/Resolved]
  - Electrocardiogram QT prolonged [Recovered/Resolved]
  - Torsade de pointes [Recovered/Resolved]
  - Pulmonary haemorrhage [Unknown]
